FAERS Safety Report 25374923 (Version 1)
Quarter: 2025Q2

REPORT INFORMATION
  Report Type: Spontaneous
  Country: US (occurrence: None)
  Receive Date: 20250529
  Receipt Date: 20250529
  Transmission Date: 20250716
  Serious: Yes (Hospitalization)
  Sender: FDA-CTU
  Company Number: None

PATIENT
  Age: 53 Year
  Sex: Female

DRUGS (1)
  1. HUMIRA [Suspect]
     Active Substance: ADALIMUMAB
     Route: 058
     Dates: start: 20241008, end: 20241203

REACTIONS (5)
  - Alopecia [None]
  - Therapy cessation [None]
  - Pneumonia [None]
  - Respiratory syncytial virus infection [None]
  - Pneumothorax [None]

NARRATIVE: CASE EVENT DATE: 20250209
